FAERS Safety Report 17980539 (Version 1)
Quarter: 2020Q3

REPORT INFORMATION
  Report Type: Report from Study
  Country: None (occurrence: BR)
  Receive Date: 20200704
  Receipt Date: 20200704
  Transmission Date: 20201103
  Serious: Yes (Other)
  Sender: FDA-Public Use
  Company Number: BR-ABBVIE-20K-020-3468690-00

PATIENT
  Sex: Female
  Weight: 57 kg

DRUGS (5)
  1. HUMIRA [Suspect]
     Active Substance: ADALIMUMAB
     Indication: RHEUMATOID ARTHRITIS
     Route: 058
     Dates: start: 20111002
  2. BENICAR [Concomitant]
     Active Substance: OLMESARTAN MEDOXOMIL
     Indication: HYPERTENSION
     Dosage: ONCE AT MORNING
     Route: 048
  3. METHOTREXATE. [Suspect]
     Active Substance: METHOTREXATE
     Indication: PRODUCT USED FOR UNKNOWN INDICATION
     Route: 065
  4. PURAN [Concomitant]
     Active Substance: LEVOTHYROXINE SODIUM
     Indication: HYPOTHYROIDISM
     Route: 048
  5. LEFLUNOMIDE. [Suspect]
     Active Substance: LEFLUNOMIDE
     Indication: PRODUCT USED FOR UNKNOWN INDICATION
     Route: 065

REACTIONS (20)
  - Urinary tract infection [Unknown]
  - Food intolerance [Unknown]
  - Rheumatic disorder [Unknown]
  - Finger deformity [Not Recovered/Not Resolved]
  - Anxiety [Unknown]
  - Abdominal pain [Unknown]
  - Dyspnoea [Unknown]
  - Paraesthesia [Unknown]
  - Pain [Unknown]
  - Depressed mood [Unknown]
  - Renal cyst [Not Recovered/Not Resolved]
  - Gastrointestinal disorder [Unknown]
  - Lung disorder [Not Recovered/Not Resolved]
  - Arthralgia [Unknown]
  - Cough [Not Recovered/Not Resolved]
  - Peripheral swelling [Recovering/Resolving]
  - Foot deformity [Not Recovered/Not Resolved]
  - Intestinal perforation [Not Recovered/Not Resolved]
  - Fibromyalgia [Recovering/Resolving]
  - Blood pressure fluctuation [Unknown]

NARRATIVE: CASE EVENT DATE: 2019
